FAERS Safety Report 25184119 (Version 2)
Quarter: 2025Q2

REPORT INFORMATION
  Report Type: Spontaneous
  Country: US (occurrence: US)
  Receive Date: 20250410
  Receipt Date: 20250502
  Transmission Date: 20250716
  Serious: No
  Sender: PFIZER
  Company Number: US-PFIZER INC-202500075347

PATIENT
  Age: 27 Year
  Sex: Female

DRUGS (1)
  1. LITFULO [Suspect]
     Active Substance: RITLECITINIB TOSYLATE
     Dosage: 50 MG, DAILY (TAKE ONE CAPSULE BY MOUTH DAILY AS DIRECTED)
     Route: 048

REACTIONS (3)
  - Hypotension [Unknown]
  - Fatigue [Unknown]
  - Drug ineffective [Unknown]
